FAERS Safety Report 4765338-7 (Version None)
Quarter: 2005Q3

REPORT INFORMATION
  Report Type: 
  Country: None (occurrence: None)
  Receive Date: 20050909
  Receipt Date: 20050606
  Transmission Date: 20060218
  Serious: Yes (Hospitalization)
  Sender: FDA-Public Use
  Company Number: US-MERCK-0506USA01044

PATIENT
  Age: 64 Year
  Sex: Female
  Weight: 72 kg

DRUGS (27)
  1. AVELOX [Concomitant]
     Route: 048
  2. ZITHROMAX [Concomitant]
     Route: 048
  3. PREDNISONE [Concomitant]
     Route: 048
  4. LEVAQUIN [Concomitant]
     Route: 048
  5. KWELCOF [Concomitant]
     Route: 048
  6. CLARITIN [Concomitant]
     Route: 048
  7. BIAXIN [Concomitant]
     Route: 048
  8. ZYRTEC [Concomitant]
     Route: 048
  9. PERMETHRIN [Concomitant]
     Route: 061
  10. DAYPRO [Concomitant]
     Route: 048
  11. VIOXX [Suspect]
     Indication: ARTHRITIS
     Route: 048
     Dates: start: 19990101, end: 20040901
  12. ECOTRIN [Concomitant]
     Indication: PROPHYLAXIS
     Route: 048
     Dates: start: 19940101
  13. LIPITOR [Concomitant]
     Indication: BLOOD CHOLESTEROL INCREASED
     Route: 048
     Dates: start: 20020101, end: 20040101
  14. ALTACE [Concomitant]
     Indication: HYPERTENSION
     Route: 048
     Dates: start: 20030101, end: 20040101
  15. MULTIVITAMIN [Concomitant]
     Route: 048
  16. NEXIUM [Concomitant]
     Indication: HIATUS HERNIA
     Route: 048
  17. TRICOR [Concomitant]
     Indication: BLOOD CHOLESTEROL INCREASED
     Route: 048
  18. DYNABAC [Concomitant]
     Route: 048
  19. GUAIFENESIN AND HYDROCODONE BITARTRATE [Concomitant]
     Route: 048
  20. CARBETAPENTANE TANNATE AND CHLORPHENIRAMINE TANNATE AND PHENYLEPHRINE [Concomitant]
     Route: 048
  21. OLUX FOAM [Concomitant]
     Route: 061
  22. CEFTIN [Concomitant]
     Route: 048
  23. SULFACETAMIDE [Concomitant]
     Route: 061
  24. ADVAIR DISKUS 100/50 [Concomitant]
     Indication: COUGH
     Route: 048
  25. OCUFLOX [Concomitant]
     Route: 048
  26. PRILOSEC [Concomitant]
     Indication: HIATUS HERNIA
     Route: 048
  27. FAMVIR [Concomitant]
     Route: 065

REACTIONS (3)
  - CARDIAC DISORDER [None]
  - MYOCARDIAL INFARCTION [None]
  - ROAD TRAFFIC ACCIDENT [None]
